FAERS Safety Report 24947448 (Version 2)
Quarter: 2025Q1

REPORT INFORMATION
  Report Type: Spontaneous
  Country: US (occurrence: US)
  Receive Date: 20250210
  Receipt Date: 20250327
  Transmission Date: 20250408
  Serious: Yes (Other)
  Sender: ALEXION PHARMACEUTICALS
  Company Number: US-AstraZeneca-CH-00802236AP

PATIENT
  Age: 83 Year

DRUGS (1)
  1. SYMBICORT [Suspect]
     Active Substance: BUDESONIDE\FORMOTEROL FUMARATE DIHYDRATE
     Indication: Product used for unknown indication
     Route: 065

REACTIONS (14)
  - Macular degeneration [Unknown]
  - Blindness [Unknown]
  - Asthma [Unknown]
  - Respiratory tract congestion [Not Recovered/Not Resolved]
  - Dysphonia [Unknown]
  - Taste disorder [Unknown]
  - Intentional product misuse [Unknown]
  - Product dose omission in error [Unknown]
  - Underdose [Unknown]
  - Wrong technique in device usage process [Unknown]
  - Device use issue [Unknown]
  - Product use issue [Unknown]
  - Device use issue [Unknown]
  - Device delivery system issue [Unknown]
